FAERS Safety Report 26171211 (Version 1)
Quarter: 2025Q4

REPORT INFORMATION
  Report Type: Spontaneous
  Country: US (occurrence: None)
  Receive Date: 20251217
  Receipt Date: 20251217
  Transmission Date: 20260118
  Serious: Yes (Life-Threatening, Hospitalization, Disabling)
  Sender: FDA-CTU
  Company Number: None

PATIENT
  Age: 56 Year
  Sex: Female
  Weight: 93.15 kg

DRUGS (2)
  1. DASATINIB [Suspect]
     Active Substance: DASATINIB
     Indication: Chronic myeloid leukaemia
     Dates: start: 20251028, end: 20251202
  2. HYDROXYUREA [Concomitant]
     Active Substance: HYDROXYUREA
     Dates: start: 20251021

REACTIONS (2)
  - Acute myocardial infarction [None]
  - Ejection fraction decreased [None]

NARRATIVE: CASE EVENT DATE: 20251202
